FAERS Safety Report 19884202 (Version 1)
Quarter: 2021Q3

REPORT INFORMATION
  Report Type: Spontaneous
  Country: US (occurrence: US)
  Receive Date: 20210925
  Receipt Date: 20210925
  Transmission Date: 20211014
  Serious: Yes (Other)
  Sender: FDA-Public Use
  Company Number: None

PATIENT
  Age: 46 Year
  Sex: Female
  Weight: 65.25 kg

DRUGS (13)
  1. PERSANTINE [Concomitant]
     Active Substance: DIPYRIDAMOLE
  2. RESTASIS [Concomitant]
     Active Substance: CYCLOSPORINE
  3. ASPIRIN 81MG [Concomitant]
     Active Substance: ASPIRIN
  4. OFEV [Suspect]
     Active Substance: NINTEDANIB
     Indication: INTERSTITIAL LUNG DISEASE
     Dosage: ?          QUANTITY:1 TABLET(S);?
     Route: 048
  5. REVATIO [Concomitant]
     Active Substance: SILDENAFIL CITRATE
  6. SUPPLEMENTAL OXYGEN [Concomitant]
     Active Substance: OXYGEN
  7. AMITIZA [Concomitant]
     Active Substance: LUBIPROSTONE
  8. LASIX [Concomitant]
     Active Substance: FUROSEMIDE
  9. PROBIOTIC [Concomitant]
     Active Substance: PROBIOTICS NOS
  10. PLAQUENIL [Concomitant]
     Active Substance: HYDROXYCHLOROQUINE SULFATE
  11. OMEPROZALE [Concomitant]
  12. TYLENOL ARTHRITIS PAIN [Concomitant]
     Active Substance: ACETAMINOPHEN
  13. VITAMIN D [Concomitant]
     Active Substance: VITAMIN D NOS

REACTIONS (2)
  - Impaired healing [None]
  - Skin ulcer [None]

NARRATIVE: CASE EVENT DATE: 20210301
